FAERS Safety Report 10385465 (Version 3)
Quarter: 2014Q4

REPORT INFORMATION
  Report Type: Spontaneous
  Country: US (occurrence: US)
  Receive Date: 20140814
  Receipt Date: 20141022
  Transmission Date: 20150528
  Serious: Yes (Other)
  Sender: FDA-Public Use
  Company Number: US-GLAXOSMITHKLINE-A1084214A

PATIENT
  Age: 57 Year
  Sex: Female

DRUGS (16)
  1. VALTREX [Suspect]
     Active Substance: VALACYCLOVIR HYDROCHLORIDE
     Indication: HERPES VIRUS INFECTION
     Dosage: 1 G, QD
     Route: 048
  2. CYMBALTA [Concomitant]
     Active Substance: DULOXETINE HYDROCHLORIDE
  3. CYCLOBENZAPRINE [Concomitant]
     Active Substance: CYCLOBENZAPRINE
  4. PROMETHAZINE [Concomitant]
     Active Substance: PROMETHAZINE\PROMETHAZINE HYDROCHLORIDE
  5. XANAX [Concomitant]
     Active Substance: ALPRAZOLAM
  6. BETAMETHASONE DIPROPIONATE. [Concomitant]
     Active Substance: BETAMETHASONE DIPROPIONATE
  7. FOLIC ACID. [Concomitant]
     Active Substance: FOLIC ACID
  8. NORVASC [Concomitant]
     Active Substance: AMLODIPINE BESYLATE
  9. PREVACID [Concomitant]
     Active Substance: LANSOPRAZOLE
  10. DURAGESIC (DEXTROPROPOXYPHENE/PARACETAMOL) [Concomitant]
  11. HYDROCODONE ACETAMINOPHEN [Concomitant]
     Active Substance: ACETAMINOPHEN\HYDROCODONE BITARTRATE
  12. LAMICTAL [Suspect]
     Active Substance: LAMOTRIGINE
  13. LEVOTHYROXINE [Concomitant]
     Active Substance: LEVOTHYROXINE
  14. VITAMIN D3 [Concomitant]
     Active Substance: CHOLECALCIFEROL
  15. MUPIROCIN. [Suspect]
     Active Substance: MUPIROCIN
     Dosage: UNK, U
  16. TOPROL XL [Concomitant]
     Active Substance: METOPROLOL SUCCINATE

REACTIONS (9)
  - Treatment noncompliance [Recovered/Resolved]
  - Feeling abnormal [Unknown]
  - Eye inflammation [Unknown]
  - Blindness [Unknown]
  - Cataract [Unknown]
  - Eye disorder [Unknown]
  - Intraocular lens implant [Unknown]
  - Ocular hyperaemia [Unknown]
  - Photopsia [Unknown]

NARRATIVE: CASE EVENT DATE: 20140501
